FAERS Safety Report 7568157-1 (Version None)
Quarter: 2011Q2

REPORT INFORMATION
  Report Type: 
  Country: None (occurrence: None)
  Receive Date: 20110616
  Receipt Date: 20110609
  Transmission Date: 20111010
  Serious: Yes (Hospitalization)
  Sender: FDA-Public Use
  Company Number: 2011SP010778

PATIENT
  Age: 73 Year
  Sex: Male

DRUGS (8)
  1. MIRTAZAPINE [Suspect]
     Indication: ANXIETY
     Dosage: 15 MG, QD, PO
     Route: 048
     Dates: start: 20101225, end: 20101228
  2. PERMIXON [Concomitant]
  3. VOLTAREN [Concomitant]
  4. BISOPROLOL FUMARATE [Concomitant]
  5. ALPRAZOLAM [Suspect]
     Indication: ANXIETY
     Dosage: 0.25 MG. PO; 0.5 MG, PO
     Route: 048
     Dates: start: 20101210, end: 20101228
  6. ALPRAZOLAM [Suspect]
     Indication: ANXIETY
     Dosage: 0.25 MG. PO; 0.5 MG, PO
     Route: 048
     Dates: start: 20101229, end: 20110101
  7. LERCANIDIPINE [Concomitant]
  8. OMEPRAZOLE [Concomitant]

REACTIONS (3)
  - RASH MACULO-PAPULAR [None]
  - TOXIC SKIN ERUPTION [None]
  - ERYTHEMA [None]
